FAERS Safety Report 5011215-6 (Version None)
Quarter: 2006Q2

REPORT INFORMATION
  Report Type: 
  Country: None (occurrence: None)
  Receive Date: 20060523
  Receipt Date: 20060511
  Transmission Date: 20061013
  Serious: Yes (Other)
  Sender: FDA-Public Use
  Company Number: 200610714BWH

PATIENT
  Age: 66 Year
  Sex: Female
  Weight: 112.0385 kg

DRUGS (13)
  1. NEXAVAR [Suspect]
     Indication: METASTASES TO BONE
     Dosage: SEE IMAGE
     Route: 048
     Dates: start: 20060120, end: 20060206
  2. NEXAVAR [Suspect]
     Indication: METASTATIC RENAL CELL CARCINOMA
     Dosage: SEE IMAGE
     Route: 048
     Dates: start: 20060120, end: 20060206
  3. NEXAVAR [Suspect]
     Indication: METASTASES TO BONE
     Dosage: SEE IMAGE
     Route: 048
     Dates: start: 20060425
  4. NEXAVAR [Suspect]
     Indication: METASTATIC RENAL CELL CARCINOMA
     Dosage: SEE IMAGE
     Route: 048
     Dates: start: 20060425
  5. GABAPENTIN [Concomitant]
  6. LEXAPRO [Concomitant]
  7. DETROL [Concomitant]
  8. CRESTOR [Concomitant]
  9. TRAZODONE HCL [Concomitant]
  10. NAPROSYN [Concomitant]
  11. PROMETHAZINE [Concomitant]
  12. PHENTERMINE [Concomitant]
  13. ACETAMINOPHEN AND HYDROCODONE BITARTRATE [Concomitant]

REACTIONS (4)
  - LIP DRY [None]
  - RASH GENERALISED [None]
  - SKIN LACERATION [None]
  - SWOLLEN TONGUE [None]
